FAERS Safety Report 25093716 (Version 1)
Quarter: 2025Q1

REPORT INFORMATION
  Report Type: Spontaneous
  Country: CL (occurrence: ES)
  Receive Date: 20250319
  Receipt Date: 20250319
  Transmission Date: 20250408
  Serious: Yes (Hospitalization, Congenital Anomaly, Other)
  Sender: GLAXOSMITHKLINE
  Company Number: ES-Desitin-2025-00520

PATIENT

DRUGS (6)
  1. LAMOTRIGINE [Suspect]
     Active Substance: LAMOTRIGINE
     Indication: Epilepsy
     Dosage: 500 MG, 1D (HIGH DOSES)
     Route: 064
  2. LEVETIRACETAM [Suspect]
     Active Substance: LEVETIRACETAM
     Indication: Epilepsy
     Dosage: 2500 MG, 1D
     Route: 064
  3. CLOBAZAM [Suspect]
     Active Substance: CLOBAZAM
     Indication: Epilepsy
     Dosage: 10 MG, 1D
     Route: 064
  4. LEVOTHYROXINE [Suspect]
     Active Substance: LEVOTHYROXINE
     Indication: Hypothyroidism
     Dosage: 25 UG, 1D
     Route: 064
  5. FOLIC ACID [Suspect]
     Active Substance: FOLIC ACID
     Indication: Product used for unknown indication
     Dosage: 400 UG, 1D
     Route: 064
  6. FOLIC ACID [Suspect]
     Active Substance: FOLIC ACID
     Route: 064

REACTIONS (3)
  - Anorectal malformation [Unknown]
  - Breech presentation [Unknown]
  - Foetal exposure during pregnancy [Unknown]
